FAERS Safety Report 10642910 (Version 3)
Quarter: 2016Q1

REPORT INFORMATION
  Report Type: Spontaneous
  Country: US (occurrence: US)
  Receive Date: 20141210
  Receipt Date: 20160301
  Transmission Date: 20160525
  Serious: No
  Sender: FDA-Public Use
  Company Number: US-PFIZER INC-2014337054

PATIENT
  Age: 78 Year
  Sex: Female

DRUGS (53)
  1. VENLAFAXINE HCL [Suspect]
     Active Substance: VENLAFAXINE HYDROCHLORIDE
     Dosage: UNK
  2. VYTORIN [Suspect]
     Active Substance: EZETIMIBE\SIMVASTATIN
     Dosage: UNK
  3. DARVOCET [Suspect]
     Active Substance: ACETAMINOPHEN\PROPOXYPHENE HYDROCHLORIDE
     Dosage: UNK
  4. ULTRAM [Concomitant]
     Active Substance: TRAMADOL HYDROCHLORIDE
     Dosage: 50 MG, DAILY
  5. BLINK TEARS [Concomitant]
     Active Substance: POLYETHYLENE GLYCOL 400
     Dosage: 1 GTT, AS NEEDED (1 DROP IN EACH EYE)
  6. LYRICA [Suspect]
     Active Substance: PREGABALIN
     Dosage: UNK
  7. CRESTOR [Concomitant]
     Active Substance: ROSUVASTATIN CALCIUM
     Dosage: 10 MG, DAILY (1 EVENING)
  8. VITAMIN B12 [Concomitant]
     Active Substance: CYANOCOBALAMIN
     Dosage: 1000 MG, 2X/DAY (1 MORNING 1 EVENING)
  9. BABY ASPIRIN [Concomitant]
     Active Substance: ASPIRIN
     Dosage: 81 MG, 1X/DAY (1 MORNING)
  10. VITAMIN C [Concomitant]
     Active Substance: ASCORBIC ACID
     Dosage: UNK, 1X/DAY (1 MORNING)
  11. FOLIC ACID. [Concomitant]
     Active Substance: FOLIC ACID
     Dosage: 400 MG, 1X/DAY (1 MORNING)
  12. FLAX OIL [Concomitant]
     Dosage: UNK (1 MORNING)
  13. TRAZODONE HYDROCHLORIDE. [Suspect]
     Active Substance: TRAZODONE HYDROCHLORIDE
     Dosage: 50 MG, UNK
  14. SPIRIVA [Suspect]
     Active Substance: TIOTROPIUM BROMIDE MONOHYDRATE
     Dosage: UNK
  15. ASPIRIN. [Suspect]
     Active Substance: ASPIRIN
     Dosage: UNK
  16. PLAQUENIL [Suspect]
     Active Substance: HYDROXYCHLOROQUINE SULFATE
     Dosage: UNK
  17. ATENOLOL. [Concomitant]
     Active Substance: ATENOLOL
     Dosage: 100 MG, DAILY (1 MORNING 1 EVENING)
  18. EFFEXOR XR [Concomitant]
     Active Substance: VENLAFAXINE HYDROCHLORIDE
     Dosage: 75 MG, DAILY (EVENING)
  19. AMLODIPINE [Concomitant]
     Active Substance: AMLODIPINE BESYLATE
     Dosage: 5 MG, DAILY (1 EVENING)
  20. OXYGEN. [Concomitant]
     Active Substance: OXYGEN
     Dosage: UNK ((3) %10; DAILY: EVENING)
  21. ZYRTEC [Concomitant]
     Active Substance: CETIRIZINE HYDROCHLORIDE
     Dosage: 10 MG, DAILY (MORNING)
  22. VITAMIN D [Concomitant]
     Active Substance: CHOLECALCIFEROL
     Dosage: 1000 MG, 1X/DAY (1 MORNING)
  23. AZELASTINE [Suspect]
     Active Substance: AZELASTINE
     Dosage: UNK
  24. VIOXX [Suspect]
     Active Substance: ROFECOXIB
     Dosage: UNK
  25. ALOR [Suspect]
     Active Substance: FLUOCINOLONE ACETONIDE
     Dosage: UNK
  26. ASMANEX [Suspect]
     Active Substance: MOMETASONE FUROATE
     Dosage: INHALER
  27. IODINE [Suspect]
     Active Substance: IODINE
     Dosage: UNK
  28. LIALDA [Suspect]
     Active Substance: MESALAMINE
     Dosage: UNK
  29. FLUCONAZOLE. [Concomitant]
     Active Substance: FLUCONAZOLE
     Dosage: 150 MG, AS NEEDED (DAILY)
  30. MAGNESIUM [Concomitant]
     Active Substance: MAGNESIUM
     Dosage: 100 MG, 1X/DAY (1 MORNING)
  31. BENADRYL [Concomitant]
     Active Substance: DIPHENHYDRAMINE HYDROCHLORIDE
     Dosage: UNK, 1X/DAY (1 MORNING)
  32. CIPROFLOXACIN. [Suspect]
     Active Substance: CIPROFLOXACIN
     Dosage: UNK
  33. FLUTICASONE [Concomitant]
     Active Substance: FLUTICASONE\FLUTICASONE PROPIONATE
     Dosage: 50 MG, AS NEEDED (DAILY)
  34. COQ 10 [Concomitant]
     Active Substance: UBIDECARENONE
     Dosage: 200 MG, 1X/DAY (1 MORNING)
  35. NEILMED SINUS RINSE [Concomitant]
     Active Substance: SODIUM BICARBONATE\SODIUM CHLORIDE
     Dosage: UNK, AS NEEDED
  36. BEXTRA [Suspect]
     Active Substance: VALDECOXIB
     Dosage: UNK
  37. LISINOPRIL. [Suspect]
     Active Substance: LISINOPRIL
     Dosage: UNK
  38. SYNTHROID [Concomitant]
     Active Substance: LEVOTHYROXINE SODIUM
     Dosage: 100 UG, DAILY (MORNING)
  39. EPIPEN [Concomitant]
     Active Substance: EPINEPHRINE
     Dosage: 0.3 MG, AS NEEDED
  40. REFRESH OPTIVE [Concomitant]
     Active Substance: CARBOXYMETHYLCELLULOSE SODIUM\GLYCERIN
     Dosage: UNK, 4X/DAY
  41. RESTASIS [Concomitant]
     Active Substance: CYCLOSPORINE
     Dosage: UNK
     Dates: start: 20140208, end: 20140210
  42. AMPICILLIN [Suspect]
     Active Substance: AMPICILLIN
     Dosage: UNK
  43. LEVOTHYROXINE SODIUM. [Suspect]
     Active Substance: LEVOTHYROXINE SODIUM
     Dosage: UNK
  44. MELOXICAM. [Suspect]
     Active Substance: MELOXICAM
     Dosage: UNK
  45. SKELAXIN [Suspect]
     Active Substance: METAXALONE
     Dosage: UNK
  46. CELEXA [Suspect]
     Active Substance: CITALOPRAM HYDROBROMIDE
     Dosage: UNK
  47. DONNATAL [Concomitant]
     Active Substance: ATROPINE SULFATE\HYOSCYAMINE SULFATE\PHENOBARBITAL\SCOPOLAMINE HYDROBROMIDE
     Dosage: UNK
  48. KLOR-CON M [Concomitant]
     Active Substance: POTASSIUM CHLORIDE
     Dosage: 20 UG, DAILY (1 MORNING)
  49. CODEINE [Suspect]
     Active Substance: CODEINE
     Dosage: UNK
  50. VOLTAREN [Suspect]
     Active Substance: DICLOFENAC SODIUM
     Dosage: UNK
  51. SULINDAC. [Suspect]
     Active Substance: SULINDAC
     Dosage: UNK
  52. ATOR [Suspect]
     Active Substance: ATORVASTATIN CALCIUM
     Dosage: UNK
  53. OMEPRAZOLE. [Concomitant]
     Active Substance: OMEPRAZOLE
     Dosage: 20 MG, DAILY (1 EVENING)

REACTIONS (1)
  - Drug hypersensitivity [Unknown]

NARRATIVE: CASE EVENT DATE: 2014
